FAERS Safety Report 23471075 (Version 1)
Quarter: 2024Q1

REPORT INFORMATION
  Report Type: Spontaneous
  Country: TR (occurrence: TR)
  Receive Date: 20240202
  Receipt Date: 20240202
  Transmission Date: 20240410
  Serious: Yes (Other)
  Sender: FDA-Public Use
  Company Number: TR-ASTELLAS-2024US003361

PATIENT
  Sex: Male

DRUGS (14)
  1. XTANDI [Suspect]
     Active Substance: ENZALUTAMIDE
     Indication: Hormone-refractory prostate cancer
     Dosage: 160 MG (1 X4 DF), ONCE DAILY
     Route: 048
     Dates: start: 2018
  2. XTANDI [Suspect]
     Active Substance: ENZALUTAMIDE
     Dosage: 120 MG (1X3 DF), ONCE DAILY
     Route: 048
  3. LYRICA [Suspect]
     Active Substance: PREGABALIN
     Indication: Hormone-refractory prostate cancer
     Dosage: UNK UNK, UNKNOWN FREQ.
     Route: 065
     Dates: start: 2018
  4. LUTETIUM LU-177 [Suspect]
     Active Substance: LUTETIUM LU-177
     Indication: Product used for unknown indication
     Dosage: UNK UNK, CYCLIC (CYCLE 1)
     Route: 065
     Dates: start: 20180903
  5. LUTETIUM LU-177 [Suspect]
     Active Substance: LUTETIUM LU-177
     Dosage: UNK UNK, CYCLIC (CYCLE 2)
     Route: 065
  6. LUTETIUM LU-177 [Suspect]
     Active Substance: LUTETIUM LU-177
     Dosage: UNK UNK, CYCLIC (CYCLE 4)
     Route: 065
  7. LUTETIUM LU-177 [Suspect]
     Active Substance: LUTETIUM LU-177
     Dosage: UNK UNK, CYCLIC (CYCLE 5)
     Route: 065
  8. COZAAR [Concomitant]
     Active Substance: LOSARTAN POTASSIUM
     Indication: Product used for unknown indication
     Dosage: 1 X 1, UNKNOWN FREQ.
     Route: 065
  9. ASPIRIN [Concomitant]
     Active Substance: ASPIRIN
     Indication: Product used for unknown indication
     Dosage: UNK UNK, UNKNOWN FREQ.
     Route: 065
  10. PROPOLIS WAX [Concomitant]
     Active Substance: PROPOLIS WAX
     Indication: Product used for unknown indication
     Dosage: UNK UNK, UNKNOWN FREQ.
     Route: 065
  11. Immunex [Concomitant]
     Indication: Product used for unknown indication
     Dosage: UNK UNK, UNKNOWN FREQ.
     Route: 065
  12. VITAMIN D [Concomitant]
     Active Substance: VITAMIN D NOS
     Indication: Product used for unknown indication
     Dosage: UNK UNK, UNKNOWN FREQ.
     Route: 065
  13. SELENIUM [Concomitant]
     Active Substance: SELENIUM
     Indication: Supplementation therapy
     Dosage: UNK UNK, UNKNOWN FREQ.
     Route: 065
  14. VITAMINS [Concomitant]
     Active Substance: VITAMINS
     Indication: Product used for unknown indication
     Dosage: UNK UNK, UNKNOWN FREQ.
     Route: 065

REACTIONS (2)
  - Performance status decreased [Unknown]
  - Weight decreased [Unknown]
